FAERS Safety Report 11063793 (Version 1)
Quarter: 2015Q2

REPORT INFORMATION
  Report Type: Spontaneous
  Country: US (occurrence: US)
  Receive Date: 20150424
  Receipt Date: 20150424
  Transmission Date: 20150821
  Serious: No
  Sender: FDA-Public Use
  Company Number: US-TARO-2014TAR00642

PATIENT
  Age: 87 Year
  Sex: Male
  Weight: 86.17 kg

DRUGS (7)
  1. METOPROLOL TARTRATE. [Concomitant]
     Active Substance: METOPROLOL TARTRATE
     Dosage: 12.5 MG, 2X/DAY
  2. FLUOROURACIL TOPICAL CREAM USP 5% [Suspect]
     Active Substance: FLUOROURACIL
     Indication: LIP DISORDER
     Dosage: UNK UNK, 2X/DAY
     Route: 061
     Dates: start: 20141205, end: 20141215
  3. CLOPIDOGREL [Concomitant]
     Active Substance: CLOPIDOGREL BISULFATE
     Dosage: 75 MG, 1X/DAY
  4. LIPITOR [Concomitant]
     Active Substance: ATORVASTATIN CALCIUM
     Dosage: 40 MG, 1X/DAY
  5. ELIQUIS [Concomitant]
     Active Substance: APIXABAN
     Dosage: 2.5 MG, 2X/DAY
  6. VITAMIN D3 [Concomitant]
     Active Substance: CHOLECALCIFEROL
     Dosage: 1000 MG, UNK
  7. CENTRUM SILVER MULTIVITAMIN [Concomitant]
     Dosage: .5 TABLETS, 2X/DAY

REACTIONS (6)
  - Application site scab [Recovering/Resolving]
  - Application site swelling [Recovering/Resolving]
  - Application site pruritus [Recovering/Resolving]
  - Chapped lips [Recovering/Resolving]
  - Application site irritation [Recovering/Resolving]
  - Application site haemorrhage [Recovering/Resolving]

NARRATIVE: CASE EVENT DATE: 20141215
